FAERS Safety Report 8810669 (Version 1)
Quarter: 2012Q4

REPORT INFORMATION
  Report Type: Spontaneous
  Country: US (occurrence: None)
  Receive Date: 20120924
  Receipt Date: 20120924
  Transmission Date: 20130627
  Serious: No
  Sender: FDA-Public Use
  Company Number: None

PATIENT
  Sex: Female
  Weight: 18.14 kg

DRUGS (2)
  1. CETIRIZINE HYDROCHLORIDE [Suspect]
     Indication: MULTIPLE ALLERGIES
     Route: 048
     Dates: start: 20120816, end: 20120913
  2. CETIRIZINE HYDROCHLORIDE [Suspect]
     Indication: POSTNASAL DRIP
     Route: 048
     Dates: start: 20120816, end: 20120913

REACTIONS (6)
  - Nightmare [None]
  - Hallucination, visual [None]
  - Irritability [None]
  - Anxiety [None]
  - Aggression [None]
  - Screaming [None]
